FAERS Safety Report 15952343 (Version 2)
Quarter: 2019Q1

REPORT INFORMATION
  Report Type: Spontaneous
  Country: US (occurrence: US)
  Receive Date: 20190211
  Receipt Date: 20190226
  Transmission Date: 20190417
  Serious: Yes (Hospitalization)
  Sender: FDA-Public Use
  Company Number: US-TASMAN PHARMA, INC.-2019TSM00005

PATIENT
  Age: 26 Year
  Sex: Male

DRUGS (1)
  1. CLOZAPINE. [Suspect]
     Active Substance: CLOZAPINE
     Indication: SCHIZOPHRENIA
     Dosage: (TITRATED TO) 350 MG, ONCE (BEDTIME)
     Route: 065
     Dates: start: 201705, end: 20170803

REACTIONS (2)
  - Monocytopenia [Recovered/Resolved]
  - Agranulocytosis [Recovered/Resolved]
